FAERS Safety Report 13621429 (Version 2)
Quarter: 2017Q2

REPORT INFORMATION
  Report Type: Spontaneous
  Country: US (occurrence: US)
  Receive Date: 20170607
  Receipt Date: 20170626
  Transmission Date: 20170830
  Serious: No
  Sender: FDA-Public Use
  Company Number: US-PFIZER INC-2017247382

PATIENT
  Age: 1 Year
  Sex: Male

DRUGS (1)
  1. CHILDRENS ADVIL [Suspect]
     Active Substance: IBUPROFEN
     Indication: PYREXIA
     Dosage: 3.75 ML, UNK

REACTIONS (3)
  - Drug administered to patient of inappropriate age [Unknown]
  - Vomiting [Unknown]
  - Malaise [Unknown]
